FAERS Safety Report 8440665 (Version 7)
Quarter: 2013Q1

REPORT INFORMATION
  Report Type: Spontaneous
  Country: US (occurrence: US)
  Receive Date: 20120305
  Receipt Date: 20130325
  Transmission Date: 20140127
  Serious: Yes (Hospitalization, Other)
  Sender: FDA-Public Use
  Company Number: US-ROCHE-1020274

PATIENT
  Age: 28 None
  Sex: Female
  Weight: 43.13 kg

DRUGS (1)
  1. ACCUTANE [Suspect]
     Indication: ACNE
     Route: 065
     Dates: start: 1997

REACTIONS (8)
  - Crohn^s disease [Unknown]
  - Perirectal abscess [Unknown]
  - Inflammatory bowel disease [Unknown]
  - Intestinal obstruction [Unknown]
  - Fistula [Unknown]
  - Small intestinal obstruction [Unknown]
  - Pyoderma gangrenosum [Unknown]
  - Irritable bowel syndrome [Unknown]
